FAERS Safety Report 12769575 (Version 2)
Quarter: 2016Q4

REPORT INFORMATION
  Report Type: Spontaneous
  Country: FR (occurrence: FR)
  Receive Date: 20160922
  Receipt Date: 20161215
  Transmission Date: 20170207
  Serious: Yes (Other)
  Sender: FDA-Public Use
  Company Number: FR-BAXTER-2016BAX047392

PATIENT
  Age: 41 Year
  Sex: Male

DRUGS (21)
  1. ENDOXAN 1000 MG, POUDRE POUR SOLUTION INJECTABLE [Suspect]
     Active Substance: CYCLOPHOSPHAMIDE
     Indication: OFF LABEL USE
     Dosage: ONCE PER COURSE OF CHEMOTHERAPY
     Route: 042
     Dates: start: 20160306
  2. ENDOXAN 1000 MG, POUDRE POUR SOLUTION INJECTABLE [Suspect]
     Active Substance: CYCLOPHOSPHAMIDE
     Dosage: ONCE PER COURSE OF CHEMOTHERAPY
     Route: 042
     Dates: start: 20160513
  3. CISPLATIN. [Suspect]
     Active Substance: CISPLATIN
     Dosage: ONCE PER COURSE OF CHEMOTHERAPY
     Route: 065
     Dates: start: 20160513
  4. MESTINON [Concomitant]
     Active Substance: PYRIDOSTIGMINE BROMIDE
     Indication: PRODUCT USED FOR UNKNOWN INDICATION
     Route: 065
  5. ENDOXAN 1000 MG, POUDRE POUR SOLUTION INJECTABLE [Suspect]
     Active Substance: CYCLOPHOSPHAMIDE
     Dosage: ONCE PER COURSE OF CHEMOTHERAPY
     Route: 042
     Dates: start: 20160630
  6. DOXORUBICIN [Suspect]
     Active Substance: DOXORUBICIN
     Dosage: ONCE PER COURSE OF CHEMOTHERAPY
     Route: 065
     Dates: start: 20160330
  7. DOXORUBICIN [Suspect]
     Active Substance: DOXORUBICIN
     Dosage: ONCE PER COURSE OF CHEMOTHERAPY
     Route: 065
     Dates: start: 20160513
  8. CISPLATIN. [Suspect]
     Active Substance: CISPLATIN
     Dosage: ONCE PER COURSE OF CHEMOTHERAPY
     Route: 065
     Dates: start: 20160330
  9. CISPLATIN. [Suspect]
     Active Substance: CISPLATIN
     Indication: METASTASES TO PLEURA
     Dosage: ONCE PER COURSE OF CHEMOTHERAPY
     Route: 065
     Dates: start: 20160214
  10. ENDOXAN 1000 MG, POUDRE POUR SOLUTION INJECTABLE [Suspect]
     Active Substance: CYCLOPHOSPHAMIDE
     Indication: METASTASES TO PLEURA
     Dosage: ONCE PER COURSE OF CHEMOTHERAPY
     Route: 042
     Dates: start: 20160214
  11. CISPLATIN. [Suspect]
     Active Substance: CISPLATIN
     Dosage: ONCE PER COURSE OF CHEMOTHERAPY
     Route: 065
     Dates: start: 20160420
  12. CISPLATIN. [Suspect]
     Active Substance: CISPLATIN
     Dosage: ONCE PER COURSE OF CHEMOTHERAPY
     Route: 065
     Dates: start: 20160630
  13. ENDOXAN 1000 MG, POUDRE POUR SOLUTION INJECTABLE [Suspect]
     Active Substance: CYCLOPHOSPHAMIDE
     Dosage: ONCE PER COURSE OF CHEMOTHERAPY
     Route: 042
     Dates: start: 20160330
  14. ENDOXAN 1000 MG, POUDRE POUR SOLUTION INJECTABLE [Suspect]
     Active Substance: CYCLOPHOSPHAMIDE
     Dosage: ONCE PER COURSE OF CHEMOTHERAPY
     Route: 042
     Dates: start: 20160420
  15. DOXORUBICIN [Suspect]
     Active Substance: DOXORUBICIN
     Indication: METASTASES TO PLEURA
     Dosage: ONCE PER COURSE OF CHEMOTHERAPY
     Route: 065
     Dates: start: 20160214
  16. CORTANCYL [Concomitant]
     Active Substance: PREDNISONE
     Indication: PRODUCT USED FOR UNKNOWN INDICATION
     Route: 065
  17. CISPLATIN. [Suspect]
     Active Substance: CISPLATIN
     Dosage: ONCE PER COURSE OF CHEMOTHERAPY
     Route: 065
     Dates: start: 20160306
  18. DOXORUBICIN [Suspect]
     Active Substance: DOXORUBICIN
     Dosage: ONCE PER COURSE OF CHEMOTHERAPY
     Route: 065
     Dates: start: 20160306
  19. DOXORUBICIN [Suspect]
     Active Substance: DOXORUBICIN
     Dosage: ONCE PER COURSE OF CHEMOTHERAPY
     Route: 065
     Dates: start: 20160420
  20. DOXORUBICIN [Suspect]
     Active Substance: DOXORUBICIN
     Dosage: ONCE PER COURSE OF CHEMOTHERAPY
     Route: 065
     Dates: start: 20160630
  21. CELLCEPT [Concomitant]
     Active Substance: MYCOPHENOLATE MOFETIL\MYCOPHENOLATE MOFETIL HYDROCHLORIDE
     Indication: PRODUCT USED FOR UNKNOWN INDICATION
     Route: 065

REACTIONS (1)
  - Lung consolidation [Recovered/Resolved]

NARRATIVE: CASE EVENT DATE: 20160407
